FAERS Safety Report 9161152 (Version 1)
Quarter: 2013Q1

REPORT INFORMATION
  Report Type: Spontaneous
  Country: US (occurrence: US)
  Receive Date: 20130313
  Receipt Date: 20130313
  Transmission Date: 20140127
  Serious: Yes (Hospitalization)
  Sender: FDA-Public Use
  Company Number: US-GLAXOSMITHKLINE-A0723723A

PATIENT
  Age: 63 Year
  Sex: Male
  Weight: 107.3 kg

DRUGS (1)
  1. AVANDIA [Suspect]
     Indication: TYPE 2 DIABETES MELLITUS
     Dosage: 8MG PER DAY
     Dates: start: 20020819, end: 20070716

REACTIONS (5)
  - Myocardial infarction [Unknown]
  - Amnesia [Unknown]
  - Disturbance in attention [Unknown]
  - Asthenia [Unknown]
  - Anger [Unknown]
